FAERS Safety Report 9158435 (Version 1)
Quarter: 2013Q1

REPORT INFORMATION
  Report Type: Report from Study
  Country: FR (occurrence: FR)
  Receive Date: 20130312
  Receipt Date: 20130312
  Transmission Date: 20140127
  Serious: Yes (Other)
  Sender: FDA-Public Use
  Company Number: FR-BRISTOL-MYERS SQUIBB COMPANY-17443730

PATIENT
  Age: 72 Year
  Sex: Male

DRUGS (5)
  1. DASATINIB [Suspect]
     Indication: CHRONIC MYELOID LEUKAEMIA
     Dates: start: 20070228, end: 20071218
  2. ARAVA [Concomitant]
  3. CORTANCYL [Concomitant]
  4. KARDEGIC [Concomitant]
  5. DI-ANTALVIC [Concomitant]

REACTIONS (2)
  - Pleural disorder [Unknown]
  - Skin toxicity [Unknown]
